FAERS Safety Report 15841820 (Version 2)
Quarter: 2019Q1

REPORT INFORMATION
  Report Type: Spontaneous
  Country: US (occurrence: US)
  Receive Date: 20190118
  Receipt Date: 20190219
  Transmission Date: 20190417
  Serious: No
  Sender: FDA-Public Use
  Company Number: US-009507513-1901USA006225

PATIENT
  Age: 25 Year
  Sex: Female
  Weight: 54.42 kg

DRUGS (1)
  1. NEXPLANON [Suspect]
     Active Substance: ETONOGESTREL
     Indication: CONTRACEPTION
     Dosage: FREQUENCY: 3 YEARS, ROUTE OF ADMININTRATION: LEFT / IMPLANT
     Route: 059
     Dates: start: 20180417

REACTIONS (2)
  - Back pain [Not Recovered/Not Resolved]
  - Implant site pain [Not Recovered/Not Resolved]
